FAERS Safety Report 7204144-0 (Version None)
Quarter: 2010Q4

REPORT INFORMATION
  Report Type: 
  Country: None (occurrence: None)
  Receive Date: 20101220
  Receipt Date: 20101203
  Transmission Date: 20110411
  Serious: Yes (Hospitalization)
  Sender: FDA-Public Use
  Company Number: 021293

PATIENT
  Sex: Female

DRUGS (12)
  1. CERTOLIZUMAB PEGOL (CERTOLIZUMAB PEGOL) [Suspect]
     Indication: RHEUMATOID ARTHRITIS
     Dosage: (200 MG 1X/2 WEEKS, C87041 SUBCUTANEOUS) ; (200 MG 1X/2 WEEKS SUBCUTANEOUS)
     Route: 058
     Dates: start: 20100127, end: 20100715
  2. CERTOLIZUMAB PEGOL (CERTOLIZUMAB PEGOL) [Suspect]
     Indication: RHEUMATOID ARTHRITIS
     Dosage: (200 MG 1X/2 WEEKS, C87041 SUBCUTANEOUS) ; (200 MG 1X/2 WEEKS SUBCUTANEOUS)
     Route: 058
     Dates: start: 20100806
  3. PREDNISOLONE [Concomitant]
  4. TACROLIMUS [Concomitant]
  5. LOXOPROFEN SODIUM [Concomitant]
  6. ALFACALCIDOL [Concomitant]
  7. ALENDRONATE SODIUM [Concomitant]
  8. CLARITHROMYCIN [Concomitant]
  9. NETICONAZOLE HYDOCHLORIDE [Concomitant]
  10. REBAMIPIDE [Concomitant]
  11. ITOPRIDE HYDROCHLORIDE [Concomitant]
  12. LANSOPRAZOLE [Concomitant]

REACTIONS (1)
  - COLON ADENOMA [None]
